FAERS Safety Report 7768212-7 (Version None)
Quarter: 2011Q3

REPORT INFORMATION
  Report Type: 
  Country: None (occurrence: None)
  Receive Date: 20110922
  Receipt Date: 20110922
  Transmission Date: 20111222
  Serious: Yes (Other)
  Sender: FDA-Public Use
  Company Number: None

PATIENT
  Sex: Female

DRUGS (1)
  1. NOVOLOG [Suspect]
     Indication: BLOOD GLUCOSE INCREASED
     Dosage: 24 UNITS
     Route: 058
     Dates: start: 20110910, end: 20110910

REACTIONS (1)
  - MEDICATION ERROR [None]
